FAERS Safety Report 20745355 (Version 2)
Quarter: 2022Q2

REPORT INFORMATION
  Report Type: Spontaneous
  Country: PT (occurrence: PT)
  Receive Date: 20220425
  Receipt Date: 20220429
  Transmission Date: 20220721
  Serious: Yes (Hospitalization)
  Sender: FDA-Public Use
  Company Number: PT-SA-SAC20220323000865

PATIENT
  Age: 21 Year
  Sex: Female

DRUGS (3)
  1. BUDESONIDE [Suspect]
     Active Substance: BUDESONIDE
     Indication: Product used for unknown indication
     Dosage: UNK
     Route: 045
  2. TRIAMCINOLONE ACETONIDE [Suspect]
     Active Substance: TRIAMCINOLONE ACETONIDE
     Indication: Drug hypersensitivity
     Dosage: UNK
     Route: 045
     Dates: start: 20220316
  3. FEXOFENADINE [Suspect]
     Active Substance: FEXOFENADINE HYDROCHLORIDE
     Indication: Product used for unknown indication
     Dosage: UNK
     Route: 045
     Dates: start: 20220315

REACTIONS (9)
  - Hypersensitivity [Unknown]
  - Generalised oedema [Unknown]
  - Pain [Unknown]
  - Swelling face [Recovered/Resolved]
  - Nasal congestion [Recovered/Resolved]
  - Unevaluable event [Unknown]
  - Rash macular [Recovered/Resolved]
  - Joint swelling [Recovered/Resolved]
  - Peripheral swelling [Recovered/Resolved]

NARRATIVE: CASE EVENT DATE: 20220316
